FAERS Safety Report 15508582 (Version 1)
Quarter: 2018Q4

REPORT INFORMATION
  Report Type: Report from Study
  Country: US (occurrence: US)
  Receive Date: 20181016
  Receipt Date: 20181016
  Transmission Date: 20190205
  Serious: Yes (Hospitalization)
  Sender: FDA-Public Use
  Company Number: US-ACTELION-A-NJ2018-180163

PATIENT
  Age: 41 Year
  Sex: Female
  Weight: 183.22 kg

DRUGS (1)
  1. TRACLEER [Suspect]
     Active Substance: BOSENTAN
     Indication: PULMONARY HYPERTENSION
     Dosage: 125 MG, BID
     Route: 048

REACTIONS (4)
  - Pulmonary arterial hypertension [Unknown]
  - Localised infection [Unknown]
  - Fall [Unknown]
  - Haemoglobin decreased [Unknown]
